FAERS Safety Report 15434419 (Version 1)
Quarter: 2018Q3

REPORT INFORMATION
  Report Type: Spontaneous
  Country: US (occurrence: US)
  Receive Date: 20180927
  Receipt Date: 20180927
  Transmission Date: 20181010
  Serious: Yes (Other)
  Sender: FDA-Public Use
  Company Number: US-MYLANLABS-2018M1070939

PATIENT
  Age: 4 Year
  Sex: Female

DRUGS (2)
  1. CARBAMAZEPINE. [Concomitant]
     Active Substance: CARBAMAZEPINE
     Indication: PRODUCT USED FOR UNKNOWN INDICATION
     Dosage: UNK
  2. VALPROIC ACID. [Suspect]
     Active Substance: VALPROIC ACID
     Indication: SEIZURE
     Dosage: UNK

REACTIONS (9)
  - Fanconi syndrome acquired [Recovered/Resolved]
  - Osteopenia [Unknown]
  - Hyperphosphaturia [Unknown]
  - Fracture [Unknown]
  - Glycosuria [Unknown]
  - Developmental delay [Unknown]
  - Metabolic acidosis [Unknown]
  - Aminoaciduria [Unknown]
  - Renal tubular dysfunction [Unknown]
